FAERS Safety Report 16879327 (Version 1)
Quarter: 2019Q4

REPORT INFORMATION
  Report Type: Spontaneous
  Country: CA (occurrence: CA)
  Receive Date: 20191003
  Receipt Date: 20191003
  Transmission Date: 20200122
  Serious: Yes (Death)
  Sender: FDA-Public Use
  Company Number: CA-STRIDES ARCOLAB LIMITED-2019SP009250

PATIENT
  Age: 22 Year
  Sex: Female

DRUGS (8)
  1. FLUDARABINE [Suspect]
     Active Substance: FLUDARABINE PHOSPHATE
     Indication: STEM CELL TRANSPLANT
  2. CYCLOPHOSPHAMIDE. [Suspect]
     Active Substance: CYCLOPHOSPHAMIDE
     Indication: PROPHYLAXIS AGAINST GRAFT VERSUS HOST DISEASE
     Dosage: 14.5 MG/KG, UNKNOWN (DAYS ?SIX AND ?FIVE)
     Route: 042
  3. TACROLIMUS. [Suspect]
     Active Substance: TACROLIMUS
     Indication: STEM CELL TRANSPLANT
     Dosage: UNK, ON DAY +FIVE
     Route: 065
  4. MYCOPHENOLATE MOFETIL. [Suspect]
     Active Substance: MYCOPHENOLATE MOFETIL
     Indication: STEM CELL TRANSPLANT
     Dosage: UNK, ON DAY +FIVE
     Route: 065
  5. CYCLOPHOSPHAMIDE. [Suspect]
     Active Substance: CYCLOPHOSPHAMIDE
     Indication: STEM CELL TRANSPLANT
     Dosage: 50 MG/KG/DAY ON DAYS +THREE AND +FOUR
     Route: 042
  6. CYTOSINE ARABINOSIDE [Concomitant]
     Active Substance: CYTARABINE
     Indication: MYELOPROLIFERATIVE NEOPLASM
     Dosage: HIGH DOSE, 3 CYCLES
     Route: 065
  7. FLUDARABINE [Suspect]
     Active Substance: FLUDARABINE PHOSPHATE
     Indication: PROPHYLAXIS AGAINST GRAFT VERSUS HOST DISEASE
     Dosage: 30 MG/M2/DAY (DAYS ?6 TO ?2),
     Route: 042
  8. MELPHALAN. [Concomitant]
     Active Substance: MELPHALAN
     Indication: MYELOPROLIFERATIVE NEOPLASM
     Dosage: 3 CYCLES
     Route: 065

REACTIONS (2)
  - Acute respiratory distress syndrome [Fatal]
  - Off label use [Unknown]
